FAERS Safety Report 23852228 (Version 1)
Quarter: 2024Q2

REPORT INFORMATION
  Report Type: Spontaneous
  Country: US (occurrence: None)
  Receive Date: 20240513
  Receipt Date: 20240513
  Transmission Date: 20240717
  Serious: Yes (Hospitalization, Other)
  Sender: FDA-Public Use
  Company Number: None

PATIENT
  Age: 57 Year
  Sex: Female
  Weight: 75.75 kg

DRUGS (14)
  1. ZILRETTA [Suspect]
     Active Substance: TRIAMCINOLONE ACETONIDE
     Route: 030
  2. TOUJEO [Concomitant]
     Active Substance: INSULIN GLARGINE
  3. HUMALOG [Concomitant]
     Active Substance: INSULIN LISPRO
  4. LEVOTHYROXINE [Concomitant]
     Active Substance: LEVOTHYROXINE\LEVOTHYROXINE SODIUM
  5. IRON [Concomitant]
     Active Substance: IRON
  6. MAGNESIUM [Concomitant]
     Active Substance: MAGNESIUM
  7. VITAMIN A [Concomitant]
     Active Substance: VITAMIN A
  8. BITAMIN B-6 [Concomitant]
  9. VITAMIN E [Concomitant]
     Active Substance: .ALPHA.-TOCOPHEROL
  10. VITAMIN D [Concomitant]
     Active Substance: VITAMIN D NOS
  11. VITAMIN C [Concomitant]
     Active Substance: ASCORBIC ACID
  12. HERBALS [Concomitant]
     Active Substance: HERBALS
  13. NM-6603 [Concomitant]
     Active Substance: NM-6603
  14. VITAMIN D3 [Concomitant]
     Active Substance: CHOLECALCIFEROL

REACTIONS (11)
  - Blood pressure increased [None]
  - Blood glucose increased [None]
  - Hyperhidrosis [None]
  - Feeling hot [None]
  - Erythema [None]
  - Dizziness [None]
  - Pituitary tumour benign [None]
  - Idiopathic intracranial hypertension [None]
  - Diabetes mellitus inadequate control [None]
  - Blood thyroid stimulating hormone increased [None]
  - Multiple injuries [None]

NARRATIVE: CASE EVENT DATE: 20240110
